FAERS Safety Report 5819166-1 (Version None)
Quarter: 2008Q3

REPORT INFORMATION
  Report Type: 
  Country: None (occurrence: None)
  Receive Date: 20080723
  Receipt Date: 20080721
  Transmission Date: 20090109
  Serious: Yes (Hospitalization, Disabling)
  Sender: FDA-Public Use
  Company Number: A0738960A

PATIENT
  Age: 42 Year
  Sex: Female
  Weight: 113.6 kg

DRUGS (10)
  1. AVANDIA [Suspect]
     Dosage: 8MG PER DAY
     Route: 048
     Dates: start: 20000801, end: 20020101
  2. PREMARIN [Concomitant]
  3. ZESTRIL [Concomitant]
  4. PROCARDIA XL [Concomitant]
  5. VISTARIL [Concomitant]
  6. SYNTHROID [Concomitant]
  7. KDUR [Concomitant]
  8. BUMETANIDE [Concomitant]
  9. DARVOCET [Concomitant]
  10. HUMULIN R [Concomitant]

REACTIONS (2)
  - CARDIAC FAILURE CONGESTIVE [None]
  - CARDIOVASCULAR DISORDER [None]
